FAERS Safety Report 7999138-1 (Version None)
Quarter: 2011Q4

REPORT INFORMATION
  Report Type: 
  Country: None (occurrence: None)
  Receive Date: 20111221
  Receipt Date: 20111219
  Transmission Date: 20120403
  Serious: Yes (Other)
  Sender: FDA-Public Use
  Company Number: NZ-PFIZER INC-2011284778

PATIENT
  Age: 15 Year
  Sex: Male
  Weight: 30.9 kg

DRUGS (4)
  1. GENOTROPIN [Suspect]
     Indication: GROWTH RETARDATION
     Dosage: 1 MG, 1X/DAY
     Route: 058
     Dates: start: 20110501, end: 20111117
  2. FLORADIX FORMULA [Concomitant]
     Dosage: 1 TABLET, 2X/DAY
     Route: 048
  3. VITAMIN D [Concomitant]
     Indication: VITAMIN D DEFICIENCY
     Dosage: 1000 IU, 2X/DAY
     Route: 048
     Dates: start: 20110101
  4. GENOTROPIN [Suspect]
     Indication: CROHN'S DISEASE

REACTIONS (1)
  - LIVER FUNCTION TEST ABNORMAL [None]
